FAERS Safety Report 25348883 (Version 1)
Quarter: 2025Q2

REPORT INFORMATION
  Report Type: Report from Study
  Country: KR (occurrence: KR)
  Receive Date: 20250522
  Receipt Date: 20250522
  Transmission Date: 20250717
  Serious: Yes (Other)
  Sender: GUERBET
  Company Number: KR-GUERBET / KOREA-KR-20250023

PATIENT
  Age: 45 Year
  Sex: Male

DRUGS (3)
  1. LIPIODOL [Suspect]
     Active Substance: ETHIODIZED OIL
     Indication: Renal artery embolisation
     Dosage: MIXTURE OF HISTOACRYL AND LIPIODOL IN A RATIO OF 1:3
     Route: 013
  2. HISTOACRYL [Suspect]
     Active Substance: ENBUCRILATE
     Indication: Renal artery embolisation
     Route: 013
  3. POLYVINYL ALCOHOL, UNSPECIFIED [Suspect]
     Active Substance: POLYVINYL ALCOHOL, UNSPECIFIED
     Indication: Renal artery embolisation
     Route: 013

REACTIONS (2)
  - Nephropathy [Recovering/Resolving]
  - Product use in unapproved indication [Recovering/Resolving]
